FAERS Safety Report 9044579 (Version 1)
Quarter: 2013Q1

REPORT INFORMATION
  Report Type: Report from Study
  Country: US (occurrence: US)
  Receive Date: 20130130
  Receipt Date: 20130130
  Transmission Date: 20140127
  Serious: No
  Sender: FDA-Public Use
  Company Number: US-ABBOTT-12P-163-0959091-00

PATIENT
  Age: 71 Year
  Sex: Female

DRUGS (1)
  1. HUMIRA 40 MG/ 0.8 ML PRE-FILLED SYRINGE [Suspect]
     Indication: RHEUMATOID ARTHRITIS
     Route: 058
     Dates: start: 20120625, end: 20120625

REACTIONS (4)
  - Pharyngeal oedema [Unknown]
  - Throat irritation [Recovered/Resolved]
  - Hypersensitivity [Recovered/Resolved]
  - Lip swelling [Recovered/Resolved]
